FAERS Safety Report 4705577-4 (Version None)
Quarter: 2005Q2

REPORT INFORMATION
  Report Type: 
  Country: None (occurrence: None)
  Receive Date: 20050629
  Receipt Date: 20040820
  Transmission Date: 20051028
  Serious: Yes (Hospitalization)
  Sender: FDA-Public Use
  Company Number: 200410449EU

PATIENT
  Age: 53 Year
  Sex: Male
  Weight: 50 kg

DRUGS (9)
  1. CISPLATIN [Suspect]
     Indication: SQUAMOUS CELL CARCINOMA
     Dosage: IV
     Route: 042
     Dates: start: 20030908, end: 20031023
  2. FLUOROURACIL [Suspect]
     Indication: SQUAMOUS CELL CARCINOMA
     Dosage: IV
     Route: 042
     Dates: start: 20030908, end: 20031023
  3. RADIOTHERAPY [Suspect]
     Indication: SQUAMOUS CELL CARCINOMA
     Dates: start: 20030908, end: 20031023
  4. PARACODINA [Concomitant]
  5. SUCRALFIN [Concomitant]
  6. XYLOCAINE [Concomitant]
  7. PANTORC [Concomitant]
  8. TAVOR [Concomitant]
  9. TRIASPORIN [Concomitant]

REACTIONS (3)
  - HYPOTENSION [None]
  - LUNG INFECTION PSEUDOMONAL [None]
  - PNEUMONIA STAPHYLOCOCCAL [None]
